FAERS Safety Report 18540707 (Version 1)
Quarter: 2020Q4

REPORT INFORMATION
  Report Type: Spontaneous
  Country: US (occurrence: US)
  Receive Date: 20201124
  Receipt Date: 20201124
  Transmission Date: 20210114
  Serious: Yes (Hospitalization, Other)
  Sender: FDA-Public Use
  Company Number: None

PATIENT
  Age: 43 Year
  Sex: Female

DRUGS (1)
  1. TRETINOIN. [Suspect]
     Active Substance: TRETINOIN
     Indication: LEUKAEMIA
     Route: 048
     Dates: start: 20191011

REACTIONS (3)
  - Skin exfoliation [None]
  - Meningitis [None]
  - Headache [None]

NARRATIVE: CASE EVENT DATE: 20201124
